FAERS Safety Report 8040310 (Version 2)
Quarter: 2015Q1

REPORT INFORMATION
  Report Type: Spontaneous
  Country: US (occurrence: None)
  Receive Date: 20110712
  Receipt Date: 20150129
  Transmission Date: 20150721
  Serious: Yes (Other)
  Sender: FDA-Public Use
  Company Number: 029895

PATIENT
  Age: 44 Year
  Sex: Male
  Weight: 86.2 kg

DRUGS (13)
  1. KEPPRA XR [Suspect]
     Active Substance: LEVETIRACETAM
     Indication: SEIZURE
     Dosage: 1000 MG AT 7 AM AND 1000 MG 7 PM
     Dates: start: 2010, end: 201103
  2. METROPROLOL [Concomitant]
     Active Substance: METOPROLOL
  3. RANEXA (RANOLAZINE) [Concomitant]
  4. PLAVIX [Concomitant]
     Active Substance: CLOPIDOGREL BISULFATE
  5. LEXAPRO [Concomitant]
     Active Substance: ESCITALOPRAM OXALATE
  6. LORAZEPAM. [Concomitant]
     Active Substance: LORAZEPAM
  7. SIMVASTATIN. [Concomitant]
     Active Substance: SIMVASTATIN
  8. DEPAKOTE [Concomitant]
     Active Substance: DIVALPROEX SODIUM
  9. ISORDIL [Suspect]
     Active Substance: ISOSORBIDE DINITRATE
     Dosage: 20 MG, ONCE DAILY (QD)
  10. LISINOPRIL. [Concomitant]
     Active Substance: LISINOPRIL
  11. LOVASTATIN (LOVASTATIN) [Concomitant]
     Active Substance: LOVASTATIN
  12. ISOSORBIDE [Concomitant]
     Active Substance: ISOSORBIDE
  13. BABY ASA (ACETYLSALICYLIC ACID) [Concomitant]

REACTIONS (2)
  - Generalised tonic-clonic seizure [None]
  - Inappropriate schedule of drug administration [None]

NARRATIVE: CASE EVENT DATE: 2010
